FAERS Safety Report 23133443 (Version 1)
Quarter: 2023Q4

REPORT INFORMATION
  Report Type: Report from Study
  Country: NO (occurrence: None)
  Receive Date: 20231101
  Receipt Date: 20231101
  Transmission Date: 20240110
  Serious: Yes (Disabling)
  Sender: FDA-Public Use
  Company Number: NO-ROCHE-3446025

PATIENT
  Age: 49 Year
  Sex: Female

DRUGS (13)
  1. OCRELIZUMAB [Suspect]
     Active Substance: OCRELIZUMAB
     Indication: Multiple sclerosis
     Dosage: ON 23/APR/2014, THE MOST RECENT DOSE PRIOR TO AE WAS ADMINISTERED.?ON 03/AUG/2022, THE MOST RECENT D
     Route: 042
  2. EBASTINE [Concomitant]
     Active Substance: EBASTINE
     Indication: Rhinitis allergic
     Route: 048
     Dates: start: 20220524
  3. DYMISTA [Concomitant]
     Active Substance: AZELASTINE HYDROCHLORIDE\FLUTICASONE PROPIONATE
     Indication: Rhinitis allergic
     Dates: start: 20220524
  4. ZOPICLONE [Concomitant]
     Active Substance: ZOPICLONE
     Route: 048
     Dates: start: 201802
  5. ALBUTEROL [Concomitant]
     Active Substance: ALBUTEROL
     Indication: Rhinitis allergic
     Route: 055
     Dates: start: 20220609
  6. IMODIUM [Concomitant]
     Active Substance: LOPERAMIDE HYDROCHLORIDE
     Indication: Anal incontinence
     Route: 048
     Dates: start: 2022
  7. IBUPROFEN [Concomitant]
     Active Substance: IBUPROFEN
     Route: 048
     Dates: start: 20221212
  8. CHOLECALCIFEROL [Concomitant]
     Active Substance: CHOLECALCIFEROL
     Route: 048
     Dates: start: 20230113
  9. FERROMAX [Concomitant]
     Indication: Haemoglobin decreased
     Route: 048
     Dates: start: 20230223
  10. TREHALOSE [Concomitant]
     Active Substance: TREHALOSE
     Indication: Dry eye
     Route: 047
     Dates: start: 20210426
  11. MELATONIN [Concomitant]
     Active Substance: MELATONIN
     Route: 048
     Dates: start: 20230119
  12. CIPROFLOXACIN [Concomitant]
     Active Substance: CIPROFLOXACIN
     Indication: Urinary tract infection
     Route: 048
     Dates: start: 20230314, end: 20230322
  13. PROPOFOL [Concomitant]
     Active Substance: PROPOFOL
     Route: 042
     Dates: start: 20230418

REACTIONS (1)
  - Colitis [Not Recovered/Not Resolved]

NARRATIVE: CASE EVENT DATE: 20230418
